FAERS Safety Report 14595394 (Version 2)
Quarter: 2018Q1

REPORT INFORMATION
  Report Type: Report from Study
  Country: DE (occurrence: DE)
  Receive Date: 20180302
  Receipt Date: 20180306
  Transmission Date: 20180509
  Serious: Yes (Other)
  Sender: FDA-Public Use
  Company Number: DE-UCBSA-2018007991

PATIENT
  Age: 44 Year
  Sex: Female

DRUGS (1)
  1. ROTIGOTINE [Suspect]
     Active Substance: ROTIGOTINE
     Indication: PARKINSON^S DISEASE
     Dosage: 12 MG, ONCE DAILY (QD)
     Route: 062

REACTIONS (10)
  - Overdose [Unknown]
  - Wrong technique in product usage process [Unknown]
  - Application site hypersensitivity [Recovered/Resolved]
  - Application site reaction [Not Recovered/Not Resolved]
  - Blood pressure fluctuation [Unknown]
  - Drug ineffective [Unknown]
  - Stress [Unknown]
  - Product adhesion issue [Unknown]
  - Drug dose omission [Unknown]
  - Product label issue [Unknown]

NARRATIVE: CASE EVENT DATE: 201706
